FAERS Safety Report 21840049 (Version 1)
Quarter: 2023Q1

REPORT INFORMATION
  Report Type: Report from Study
  Country: US (occurrence: US)
  Receive Date: 20230110
  Receipt Date: 20230110
  Transmission Date: 20230417
  Serious: No
  Sender: FDA-Public Use
  Company Number: US-ABBVIE-4229978

PATIENT
  Age: 60 Year
  Sex: Male

DRUGS (5)
  1. RINVOQ [Suspect]
     Active Substance: UPADACITINIB
     Indication: Rheumatoid arthritis
     Route: 048
     Dates: start: 202211
  2. 25 mg Hydrochlorothiazide [Concomitant]
     Indication: Product used for unknown indication
     Route: 048
  3. 20 mg Atorvastatin calcium [Concomitant]
     Indication: Product used for unknown indication
     Route: 048
  4. PFIZER-BIONTECH COVID-19 VACCINE [Concomitant]
     Active Substance: TOZINAMERAN
     Indication: COVID-19 immunisation
     Route: 030
  5. 20 mg Lisinopril [Concomitant]
     Indication: Product used for unknown indication
     Route: 048

REACTIONS (1)
  - Diverticulum intestinal [Unknown]

NARRATIVE: CASE EVENT DATE: 20221128
